FAERS Safety Report 6504128-1 (Version None)
Quarter: 2009Q4

REPORT INFORMATION
  Report Type: 
  Country: None (occurrence: None)
  Receive Date: 20091217
  Receipt Date: 20091209
  Transmission Date: 20100525
  Serious: Yes (Life-Threatening, Hospitalization)
  Sender: FDA-Public Use
  Company Number: GB-JNJFOC-20080802343

PATIENT
  Age: 3 Year

DRUGS (2)
  1. PARACETAMOL [Suspect]
     Route: 065
  2. PARACETAMOL [Suspect]
     Indication: DRUG USE FOR UNKNOWN INDICATION
     Dosage: MAXIMUM DOSE 100 MG/KG/DAY, DURATION OF TREATMENT 4 DAYS
     Route: 065

REACTIONS (2)
  - HEPATIC FAILURE [None]
  - OVERDOSE [None]
